FAERS Safety Report 5082186-1 (Version None)
Quarter: 2006Q3

REPORT INFORMATION
  Report Type: 
  Country: None (occurrence: None)
  Receive Date: 20060815
  Receipt Date: 20060815
  Transmission Date: 20061208
  Serious: Yes (Other)
  Sender: FDA-Public Use
  Company Number: None

PATIENT
  Sex: Male
  Weight: 79.8331 kg

DRUGS (15)
  1. BEVACIZUMAB 5MG/KG, GENENTECH, BB-IND 12125 [Suspect]
     Indication: PANCREATIC NEOPLASM
     Dosage: 400 MG GE Q 2 WEEKS IV
     Route: 042
     Dates: start: 20060502, end: 20060530
  2. OXALIPLATIN 85 MG/M2 SANOFI-SYNTHELABO [Suspect]
     Indication: PANCREATIC NEOPLASM
     Dosage: 170 MG GE Q 2 WEEKS IV
     Route: 042
     Dates: start: 20060502, end: 20060530
  3. LEUCOVORIN 200 MG/M2 BEDFORD LABS AND SICOR [Suspect]
     Indication: PANCREATIC NEOPLASM
     Dosage: 400 MG Q 2 WEEKS IV
     Route: 042
     Dates: start: 20060502, end: 20060530
  4. 5-FU 400MG/M2 + 200MG/M2 SICOR AND APP [Concomitant]
     Indication: PANCREATIC NEOPLASM
     Dosage: 800 MG + 2400 MG Q 2 WEEKS IV
     Route: 042
     Dates: start: 20060502, end: 20060530
  5. VICODIN [Concomitant]
  6. IMODIUM [Concomitant]
  7. ATIVAN [Concomitant]
  8. LISONOPRIL [Concomitant]
  9. NORVASC [Concomitant]
  10. ASPIRIN [Concomitant]
  11. ALLEGRA [Concomitant]
  12. PRILOSEC [Concomitant]
  13. DEXAMETHASONE [Concomitant]
  14. LORAZEPAM [Concomitant]
  15. GRANISETRON  HCL [Concomitant]

REACTIONS (4)
  - DIARRHOEA [None]
  - ENTERITIS [None]
  - FEBRILE NEUTROPENIA [None]
  - SMALL INTESTINAL OBSTRUCTION [None]
